FAERS Safety Report 17714400 (Version 14)
Quarter: 2021Q2

REPORT INFORMATION
  Report Type: Spontaneous
  Country: US (occurrence: US)
  Receive Date: 20200427
  Receipt Date: 20210617
  Transmission Date: 20210716
  Serious: Yes (Other)
  Sender: FDA-Public Use
  Company Number: US-PFIZER INC-2020119109

PATIENT
  Age: 76 Year
  Sex: Female
  Weight: 81.65 kg

DRUGS (5)
  1. IBRANCE [Suspect]
     Active Substance: PALBOCICLIB
     Dosage: 100 MG
     Dates: start: 202004
  2. IBRANCE [Suspect]
     Active Substance: PALBOCICLIB
     Dosage: 125 MG, CYCLIC (125MG BY MOUTH DAILY FOR 21 DAYS THEN OFF FOR)
     Route: 048
     Dates: start: 202002
  3. IBRANCE [Suspect]
     Active Substance: PALBOCICLIB
     Dosage: UNK, CYCLIC (TAKING ONE FOR TWO WEEKS)
  4. IBRANCE [Suspect]
     Active Substance: PALBOCICLIB
     Indication: BREAST CANCER METASTATIC
     Dosage: 125 MG
     Dates: start: 20200203
  5. IBRANCE [Suspect]
     Active Substance: PALBOCICLIB
     Dosage: 75 MG

REACTIONS (13)
  - White blood cell count decreased [Not Recovered/Not Resolved]
  - Hypoacusis [Unknown]
  - Intentional product misuse [Unknown]
  - Insomnia [Unknown]
  - COVID-19 pneumonia [Unknown]
  - Cancer pain [Recovering/Resolving]
  - Pneumonia [Unknown]
  - Fatigue [Unknown]
  - Urinary tract infection [Unknown]
  - Confusional state [Unknown]
  - Memory impairment [Unknown]
  - Illness [Unknown]
  - Weight decreased [Unknown]

NARRATIVE: CASE EVENT DATE: 2020
